FAERS Safety Report 9019653 (Version 1)
Quarter: 2013Q1

REPORT INFORMATION
  Report Type: Spontaneous
  Country: FR (occurrence: FR)
  Receive Date: 20130118
  Receipt Date: 20130118
  Transmission Date: 20140127
  Serious: Yes (Hospitalization)
  Sender: FDA-Public Use
  Company Number: FR-BRISTOL-MYERS SQUIBB COMPANY-17299629

PATIENT
  Age: 89 Year
  Sex: Male

DRUGS (6)
  1. PRAVASTATINE [Suspect]
  2. LASILIX [Suspect]
  3. PREVISCAN [Suspect]
  4. DIFFU-K [Suspect]
  5. XATRAL [Suspect]
  6. INEXIUM [Suspect]

REACTIONS (3)
  - Fall [Unknown]
  - Rhabdomyolysis [Unknown]
  - Renal failure [Unknown]
